FAERS Safety Report 9563463 (Version 1)
Quarter: 2013Q3

REPORT INFORMATION
  Report Type: Spontaneous
  Country: CA (occurrence: None)
  Receive Date: 20130926
  Receipt Date: 20130926
  Transmission Date: 20140515
  Serious: Yes (Other)
  Sender: FDA-Public Use
  Company Number: 2013-2087-SPO

PATIENT
  Age: 50 Year
  Sex: Female
  Weight: 66.67 kg

DRUGS (3)
  1. ESTROGEL [Suspect]
     Indication: PRODUCT USED FOR UNKNOWN INDICATION
     Dosage: 2 DF, UNK, 1 D, TRANSDERMAL
  2. PROMETRIUM [Suspect]
     Dosage: 100 MG, QD,  1 IN 1 D, ORAL
     Route: 048
  3. SALAGEN [Concomitant]

REACTIONS (8)
  - Breast tenderness [None]
  - Visual acuity reduced [None]
  - Polymenorrhoea [None]
  - Pain in extremity [None]
  - Night sweats [None]
  - Muscle spasms [None]
  - Insomnia [None]
  - Drug ineffective [None]
